FAERS Safety Report 6416760-4 (Version None)
Quarter: 2009Q4

REPORT INFORMATION
  Report Type: 
  Country: None (occurrence: None)
  Receive Date: 20091022
  Receipt Date: 20091013
  Transmission Date: 20100525
  Serious: Yes (Hospitalization)
  Sender: FDA-Public Use
  Company Number: TRP_06497_2009

PATIENT
  Sex: Female

DRUGS (2)
  1. RIBASPHERE [Suspect]
     Indication: HEPATITIS C
     Dosage: (1000 MG, DAILY)
     Dates: start: 20081024
  2. PEGASYS [Suspect]
     Indication: HEPATITIS C
     Dosage: (180 UG 1X/WEEK)
     Dates: start: 20081024

REACTIONS (18)
  - ABDOMINAL PAIN [None]
  - ALOPECIA [None]
  - ANAEMIA [None]
  - DECREASED APPETITE [None]
  - DEPRESSED MOOD [None]
  - FATIGUE [None]
  - FEELING ABNORMAL [None]
  - HEADACHE [None]
  - HERNIA [None]
  - INCISION SITE PAIN [None]
  - INJECTION SITE PAIN [None]
  - INSOMNIA [None]
  - LOSS OF CONSCIOUSNESS [None]
  - NAIL DISCOLOURATION [None]
  - PAIN [None]
  - TOOTH EXTRACTION [None]
  - TOOTHACHE [None]
  - WEIGHT DECREASED [None]
